FAERS Safety Report 5542092-2 (Version None)
Quarter: 2007Q4

REPORT INFORMATION
  Report Type: 
  Country: None (occurrence: None)
  Receive Date: 20071210
  Receipt Date: 20061114
  Transmission Date: 20080405
  Serious: No
  Sender: FDA-Public Use
  Company Number: US-AMGEN-US195565

PATIENT
  Sex: Female
  Weight: 68 kg

DRUGS (2)
  1. ENBREL [Suspect]
     Indication: RHEUMATOID ARTHRITIS
     Route: 058
     Dates: start: 20050425
  2. METHOTREXATE [Concomitant]
     Route: 065
     Dates: start: 20060726

REACTIONS (1)
  - POSTOPERATIVE WOUND INFECTION [None]
